FAERS Safety Report 5195405-8 (Version None)
Quarter: 2006Q4

REPORT INFORMATION
  Report Type: 
  Country: None (occurrence: None)
  Receive Date: 20061229
  Receipt Date: 20061221
  Transmission Date: 20070319
  Serious: Yes (Death)
  Sender: FDA-Public Use
  Company Number: AU-PFIZER INC-2006155902

PATIENT
  Age: 47 Year
  Sex: Male

DRUGS (7)
  1. NEURONTIN [Interacting]
  2. XANAX [Suspect]
  3. MS CONTIN [Interacting]
  4. ALODORM [Interacting]
  5. KALMA [Concomitant]
  6. ACIMAX [Concomitant]
  7. VIAGRA [Concomitant]

REACTIONS (5)
  - DRUG ADMINISTRATION ERROR [None]
  - DRUG INTERACTION [None]
  - INCORRECT DOSE ADMINISTERED [None]
  - OVERDOSE [None]
  - RESPIRATORY DEPRESSION [None]
